FAERS Safety Report 9677589 (Version 2)
Quarter: 2013Q4

REPORT INFORMATION
  Report Type: Spontaneous
  Country: GB (occurrence: GB)
  Receive Date: 20131108
  Receipt Date: 20131224
  Transmission Date: 20140711
  Serious: Yes (Other)
  Sender: FDA-Public Use
  Company Number: GB-MERCK-1311GBR002334

PATIENT
  Sex: Female

DRUGS (1)
  1. NOXAFIL [Suspect]
     Indication: BRONCHOPULMONARY ASPERGILLOSIS
     Route: 048

REACTIONS (7)
  - Duodenal ulcer [Unknown]
  - Gastrectomy [Unknown]
  - Duodenal stenosis [Unknown]
  - Drug level decreased [Unknown]
  - Malabsorption [Unknown]
  - Drug effect decreased [Unknown]
  - Incorrect dosage administered [Unknown]
